FAERS Safety Report 8298236-5 (Version None)
Quarter: 2012Q2

REPORT INFORMATION
  Report Type: 
  Country: None (occurrence: None)
  Receive Date: 20120419
  Receipt Date: 20120222
  Transmission Date: 20120825
  Serious: No
  Sender: FDA-Public Use
  Company Number: US-BRISTOL-MYERS SQUIBB COMPANY-16411977

PATIENT
  Age: 57 Year
  Sex: Male
  Weight: 59 kg

DRUGS (1)
  1. YERVOY [Suspect]
     Indication: MALIGNANT MELANOMA
     Dosage: FIRST:MAY-JUNE 2011, SECOND:OCT 2011- JANUARY 2012
     Dates: start: 20110501, end: 20120101

REACTIONS (1)
  - BRONCHITIS [None]
